FAERS Safety Report 21736815 (Version 2)
Quarter: 2023Q1

REPORT INFORMATION
  Report Type: Report from Study
  Country: US (occurrence: US)
  Receive Date: 20221216
  Receipt Date: 20230330
  Transmission Date: 20230418
  Serious: No
  Sender: FDA-Public Use
  Company Number: US-ABBVIE-4238356

PATIENT
  Age: 68 Year
  Sex: Female
  Weight: 61.688 kg

DRUGS (17)
  1. IMBRUVICA [Suspect]
     Active Substance: IBRUTINIB
     Indication: Waldenstrom^s macroglobulinaemia
     Route: 048
     Dates: start: 201809
  2. FNP methylPREDNISolone sodium succinate [Concomitant]
     Indication: Product used for unknown indication
     Dosage: INTRAVENOUS, Q4H PRN
     Route: 042
  3. VALACYCLOVIR [Concomitant]
     Active Substance: VALACYCLOVIR HYDROCHLORIDE
     Indication: Product used for unknown indication
     Dosage: 1000 MG TABLET, DISP: , RFL:
  4. FNP famotidine [Concomitant]
     Indication: Product used for unknown indication
     Dosage: INTRAVENOUS, Q4H PRN
     Route: 042
  5. FNP sodium chloride [Concomitant]
     Indication: Product used for unknown indication
     Dosage: 0.9 % INFUSION, 20 ML/HR, INTRAVENOUS, CONTINUOUS PRN,?0.9% (NS) BOLUS 1,000 ML, 1,000 ML, INTRAV...
  6. FNP albuterol [Concomitant]
     Indication: Product used for unknown indication
     Dosage: HFA 90 MCG/ACTUATION INHALER, INHALE 2 PUFFS., DISP:
  7. CALCIUM\VITAMIN D [Concomitant]
     Active Substance: CALCIUM\VITAMIN D
     Indication: Product used for unknown indication
     Dosage: 500 MG(1,250MG) -200 UNIT PER TABLET, TAKE 1 TABLET BY MOUTH., DISP: , RFL
  8. NEXIUM [Concomitant]
     Active Substance: ESOMEPRAZOLE MAGNESIUM
     Indication: Gastrooesophageal reflux disease
     Route: 048
     Dates: start: 201906
  9. EVUSHELD [Concomitant]
     Active Substance: CILGAVIMAB\TIXAGEVIMAB
     Indication: Product used for unknown indication
     Dates: start: 20220927, end: 20220927
  10. FNP diphenhydrAMINE [Concomitant]
     Indication: Product used for unknown indication
     Dosage: 25 MG CAPSULE/TABLET/ ORAL ?25 MG  INJECTION INTRAVENOUS, Q4H PRN,
  11. FNP meperidine [Concomitant]
     Indication: Product used for unknown indication
     Dosage: INTRAVENOUS, Q30 MIN PRN,
     Route: 042
  12. AZELASTINE [Concomitant]
     Active Substance: AZELASTINE
     Indication: Product used for unknown indication
     Dosage: 137 MCG (0.1 %) NASAL SPRAY, 1 SPRAY INTO EACH NOSTRIL., DISP: , RFL:
  13. TRIAMCINOLONE [Concomitant]
     Active Substance: TRIAMCINOLONE
     Indication: Product used for unknown indication
     Dosage: 0.1 % CREAM, APPLY TOPICALLY., DISP: , RFL:
  14. ACETAMINOPHEN [Concomitant]
     Active Substance: ACETAMINOPHEN
     Indication: Product used for unknown indication
  15. FNP EPINEPHrine [Concomitant]
     Indication: Product used for unknown indication
     Route: 030
  16. MUPIROCIN [Concomitant]
     Active Substance: MUPIROCIN
     Indication: Product used for unknown indication
     Dosage: 2 % CREAM, APPLY 1 APPLICATION TOPICALLY., DISP: RFI:
  17. ONDANSETRON [Concomitant]
     Active Substance: ONDANSETRON
     Indication: Product used for unknown indication
     Dosage: 8 MG TABLET, TAKE 8 MG BY MOUTH., DISP: , RFL:

REACTIONS (3)
  - COVID-19 [Recovered/Resolved]
  - Dyspnoea [Recovered/Resolved]
  - Pneumonia [Unknown]

NARRATIVE: CASE EVENT DATE: 20220901
